FAERS Safety Report 5381047-8 (Version None)
Quarter: 2007Q3

REPORT INFORMATION
  Report Type: 
  Country: None (occurrence: None)
  Receive Date: 20070706
  Receipt Date: 20070703
  Transmission Date: 20080115
  Serious: Yes (Hospitalization)
  Sender: FDA-Public Use
  Company Number: FR-BOEHRINGER INGELHEIM PHARMACEUTICALS, INC.-2006-FF-00498FF

PATIENT
  Sex: Female
  Weight: 90 kg

DRUGS (7)
  1. VIRAMUNE [Suspect]
     Indication: PROPHYLAXIS AGAINST HIV INFECTION
     Route: 048
     Dates: start: 20001218, end: 20001222
  2. TENORMIN [Concomitant]
  3. EFFEXOR [Concomitant]
     Indication: DEPRESSION
  4. LYPANTHYL [Concomitant]
     Indication: DYSLIPIDAEMIA
  5. XANAX [Concomitant]
  6. LUTENYL [Concomitant]
  7. COMBIVIR [Concomitant]
     Indication: PROPHYLAXIS AGAINST HIV INFECTION
     Dates: end: 20010101

REACTIONS (1)
  - LEUKOCYTOCLASTIC VASCULITIS [None]
